FAERS Safety Report 7455035-1 (Version None)
Quarter: 2011Q2

REPORT INFORMATION
  Report Type: 
  Country: None (occurrence: None)
  Receive Date: 20110503
  Receipt Date: 20110426
  Transmission Date: 20111010
  Serious: Yes (Hospitalization)
  Sender: FDA-Public Use
  Company Number: PL-BRISTOL-MYERS SQUIBB COMPANY-15566177

PATIENT
  Age: 65 Year
  Sex: Female
  Weight: 40 kg

DRUGS (10)
  1. MORPHINE SULFATE [Concomitant]
  2. CISPLATIN [Suspect]
     Indication: NON-SMALL CELL LUNG CANCER
     Dosage: LAST INF:21DEC10. CYCLE:6
     Route: 065
     Dates: start: 20100907
  3. NECITUMUMAB [Suspect]
     Indication: NON-SMALL CELL LUNG CANCER
     Dosage: LAST INF:18JAN2011. CYCLE:15
     Route: 065
     Dates: start: 20100907
  4. KETONAL [Concomitant]
     Dates: start: 20110129, end: 20110201
  5. MIFLONIDE [Concomitant]
  6. ATROVENT [Concomitant]
  7. MORPHINE HCL [Concomitant]
  8. GEMZAR [Suspect]
     Indication: NON-SMALL CELL LUNG CANCER
     Dosage: LAST INF:28DEC10. CYCLE:12
     Route: 065
     Dates: start: 20100907
  9. THEOVENT [Concomitant]
  10. POLPRAZOL [Concomitant]

REACTIONS (1)
  - GASTROINTESTINAL DISORDER [None]
